FAERS Safety Report 5863088-7 (Version None)
Quarter: 2008Q3

REPORT INFORMATION
  Report Type: 
  Country: None (occurrence: None)
  Receive Date: 20080828
  Receipt Date: 20080822
  Transmission Date: 20090109
  Serious: Yes (Disabling)
  Sender: FDA-Public Use
  Company Number: IN-AVENTIS-200817873GDDC

PATIENT
  Age: 50 Year
  Sex: Male
  Weight: 65 kg

DRUGS (5)
  1. LANTUS [Suspect]
     Route: 058
     Dates: end: 20080818
  2. GLIMEPIRIDE [Concomitant]
     Route: 048
  3. METFORMIN HCL [Concomitant]
     Route: 048
  4. TELMISARTAN [Concomitant]
     Route: 048
  5. AMLODIPINE [Concomitant]
     Route: 048

REACTIONS (3)
  - DEPRESSED LEVEL OF CONSCIOUSNESS [None]
  - SOMNOLENCE [None]
  - SYNCOPE [None]
